FAERS Safety Report 14012452 (Version 1)
Quarter: 2017Q3

REPORT INFORMATION
  Report Type: Report from Study
  Country: None (occurrence: US)
  Receive Date: 20170926
  Receipt Date: 20170926
  Transmission Date: 20171128
  Serious: Yes (Hospitalization, Other)
  Sender: FDA-Public Use
  Company Number: US-ABBVIE-17K-163-2111061-00

PATIENT
  Age: 74 Year
  Sex: Male
  Weight: 88.53 kg

DRUGS (3)
  1. ELIQUIS [Concomitant]
     Active Substance: APIXABAN
     Indication: THROMBOSIS PROPHYLAXIS
     Dates: end: 201704
  2. HUMIRA [Suspect]
     Active Substance: ADALIMUMAB
     Indication: CROHN^S DISEASE
     Route: 058
  3. PRADAXA [Suspect]
     Active Substance: DABIGATRAN ETEXILATE MESYLATE
     Indication: THROMBOSIS PROPHYLAXIS
     Route: 065

REACTIONS (6)
  - Drug level decreased [Recovered/Resolved]
  - Atrial fibrillation [Not Recovered/Not Resolved]
  - Asthenia [Recovered/Resolved]
  - Haemoglobin decreased [Recovered/Resolved]
  - Gastric haemorrhage [Recovered/Resolved]
  - Coronary artery occlusion [Not Recovered/Not Resolved]

NARRATIVE: CASE EVENT DATE: 2007
